FAERS Safety Report 9533598 (Version 1)
Quarter: 2013Q1

REPORT INFORMATION
  Report Type: Spontaneous
  Country: US (occurrence: None)
  Receive Date: 20130318
  Receipt Date: 20130318
  Transmission Date: 20140127
  Serious: Yes (Other)
  Sender: FDA-Public Use
  Company Number: 2012SP031308

PATIENT
  Age: 47 Year
  Sex: Female
  Weight: 49.9 kg

DRUGS (1)
  1. PEGINTRON (PEGINTERFERON ALFA-2B) POWDER FOR INJECTION [Suspect]
     Indication: HEPATITIS
     Route: 058
     Dates: start: 20120522, end: 20120525

REACTIONS (8)
  - Mood swings [None]
  - Anxiety [None]
  - Depression [None]
  - Headache [None]
  - Nausea [None]
  - Vomiting [None]
  - Weight decreased [None]
  - Abdominal pain [None]
